FAERS Safety Report 9234263 (Version 6)
Quarter: 2013Q4

REPORT INFORMATION
  Report Type: Report from Study
  Country: FR (occurrence: FR)
  Receive Date: 20130416
  Receipt Date: 20131120
  Transmission Date: 20140711
  Serious: Yes (Death, Life-Threatening, Hospitalization, Other)
  Sender: FDA-Public Use
  Company Number: FR-ROCHE-1214914

PATIENT
  Age: 63 Year
  Sex: Female
  Weight: 134 kg

DRUGS (8)
  1. PEG-INTERFERON ALFA 2A [Suspect]
     Indication: HEPATITIS C
     Route: 058
     Dates: start: 20120928, end: 20121126
  2. RIBAVIRIN [Suspect]
     Indication: HEPATITIS C
     Route: 048
     Dates: start: 20120928, end: 20121118
  3. BOCEPREVIR [Suspect]
     Indication: HEPATITIS C
     Route: 048
     Dates: start: 20121029, end: 20121126
  4. DIAMICRON [Concomitant]
     Indication: DIABETES MELLITUS
     Route: 048
     Dates: start: 1998
  5. LEVOTHYROX [Concomitant]
     Indication: HYPOTHYROIDISM
     Route: 048
     Dates: start: 1986
  6. ISOPTINE [Concomitant]
     Indication: TACHYCARDIA
     Route: 048
     Dates: start: 201007
  7. SERETIDE [Concomitant]
     Indication: ASTHMA
     Route: 048
  8. INEXIUM [Concomitant]
     Indication: DYSPEPSIA
     Route: 048
     Dates: start: 1998

REACTIONS (8)
  - Respiratory distress [Fatal]
  - Septic shock [Fatal]
  - Bronchospasm [Not Recovered/Not Resolved]
  - Renal failure [Not Recovered/Not Resolved]
  - Hepatorenal syndrome [Not Recovered/Not Resolved]
  - Systemic inflammatory response syndrome [Not Recovered/Not Resolved]
  - Cardiac failure [Recovered/Resolved]
  - Vomiting [Recovered/Resolved]
